FAERS Safety Report 5590929-3 (Version None)
Quarter: 2007Q4

REPORT INFORMATION
  Report Type: 
  Country: None (occurrence: None)
  Receive Date: 20071214
  Receipt Date: 20070814
  Transmission Date: 20080405
  Serious: Yes (Hospitalization)
  Sender: FDA-Public Use
  Company Number: US200707007002

PATIENT
  Age: 46 Year
  Sex: Male

DRUGS (2)
  1. CIALIS [Suspect]
     Indication: ERECTILE DYSFUNCTION
     Dosage: 10 MG
     Dates: start: 20060101
  2. IBUPROFEN [Concomitant]

REACTIONS (14)
  - CHAPPED LIPS [None]
  - DRUG HYPERSENSITIVITY [None]
  - ERYTHEMA [None]
  - HERPES VIRUS INFECTION [None]
  - LIP DRY [None]
  - OCULAR HYPERAEMIA [None]
  - PAIN [None]
  - PARAESTHESIA [None]
  - PRURITUS [None]
  - PYREXIA [None]
  - SKIN BURNING SENSATION [None]
  - SKIN EXFOLIATION [None]
  - STEVENS-JOHNSON SYNDROME [None]
  - VISION BLURRED [None]
